FAERS Safety Report 14576111 (Version 1)
Quarter: 2018Q1

REPORT INFORMATION
  Report Type: Report from Study
  Country: None (occurrence: CA)
  Receive Date: 20180227
  Receipt Date: 20180227
  Transmission Date: 20180509
  Serious: Yes (Other)
  Sender: FDA-Public Use
  Company Number: CA-ABBVIE-18K-028-2263805-00

PATIENT
  Sex: Male

DRUGS (1)
  1. HUMIRA [Suspect]
     Active Substance: ADALIMUMAB
     Indication: COLITIS ULCERATIVE
     Route: 058
     Dates: start: 20131109

REACTIONS (5)
  - Anorectal disorder [Unknown]
  - Colostomy [Unknown]
  - Fatigue [Not Recovered/Not Resolved]
  - Rectal cancer [Unknown]
  - Crohn^s disease [Not Recovered/Not Resolved]
